FAERS Safety Report 17996684 (Version 2)
Quarter: 2020Q3

REPORT INFORMATION
  Report Type: Spontaneous
  Country: PT (occurrence: PT)
  Receive Date: 20200708
  Receipt Date: 20200731
  Transmission Date: 20201103
  Serious: Yes (Hospitalization, Disabling, Other)
  Sender: FDA-Public Use
  Company Number: PT-MYLANLABS-2019M1128940

PATIENT
  Age: 67 Year
  Sex: Female

DRUGS (4)
  1. SIMVASTATIN. [Suspect]
     Active Substance: SIMVASTATIN
     Indication: HYPERCHOLESTEROLAEMIA
     Dosage: 20 MILLIGRAM, QD
     Route: 048
  2. ATENOLOL CON CLORTALIDONE [Concomitant]
     Indication: HYPERTENSION
     Dosage: 100 MILLIGRAM, QD
  3. ATENOLOL CON CLORTALIDONE [Concomitant]
     Dosage: 100 MG/25 MG
     Route: 065
  4. ALLOPURINOL. [Suspect]
     Active Substance: ALLOPURINOL
     Indication: GOUT
     Dosage: 150 MILLIGRAM, QD
     Route: 048

REACTIONS (10)
  - Myalgia [Recovered/Resolved]
  - Asthenia [Recovered/Resolved]
  - Blood creatine phosphokinase increased [Recovered/Resolved]
  - Muscular weakness [Recovered/Resolved]
  - Thyroid mass [Recovering/Resolving]
  - Myopathy [Recovering/Resolving]
  - Quadriparesis [Recovered/Resolved]
  - Hepatic steatosis [Recovering/Resolving]
  - Erythema [Recovered/Resolved]
  - Immune-mediated myositis [Recovered/Resolved]
